FAERS Safety Report 5155875-8 (Version None)
Quarter: 2006Q4

REPORT INFORMATION
  Report Type: 
  Country: None (occurrence: None)
  Receive Date: 20061122
  Receipt Date: 20061120
  Transmission Date: 20070319
  Serious: Yes (Death)
  Sender: FDA-Public Use
  Company Number: US-JNJFOC-20061104782

PATIENT
  Age: 79 Year
  Sex: Female
  Weight: 36.29 kg

DRUGS (8)
  1. CISAPRIDE [Suspect]
  2. CISAPRIDE [Suspect]
     Indication: IMPAIRED GASTRIC EMPTYING
  3. PROPRANOLOL [Concomitant]
  4. PROTONIX [Concomitant]
  5. MORPHINE [Concomitant]
  6. ACETAMINOPHEN AND CODEINE PHOSPHATE [Concomitant]
  7. FUROSEMIDE [Concomitant]
  8. POTASSIUM ACETATE [Concomitant]

REACTIONS (1)
  - PERITONEAL CARCINOMA [None]
